FAERS Safety Report 9294876 (Version 2)
Quarter: 2013Q2

REPORT INFORMATION
  Report Type: Report from Study
  Country: US (occurrence: US)
  Receive Date: 20130517
  Receipt Date: 20130523
  Transmission Date: 20140414
  Serious: Yes (Other)
  Sender: FDA-Public Use
  Company Number: US-BAYER-2013-059478

PATIENT
  Age: 64 Year
  Sex: Male

DRUGS (1)
  1. STIVARGA [Suspect]
     Indication: ADENOCARCINOMA OF APPENDIX
     Dosage: 160 MG, QD
     Dates: start: 20130425, end: 20130505

REACTIONS (6)
  - Neuropathy peripheral [None]
  - Blister [None]
  - Skin tightness [None]
  - Pain of skin [None]
  - Off label use [None]
  - Abasia [None]
